FAERS Safety Report 8592733-0 (Version None)
Quarter: 2012Q3

REPORT INFORMATION
  Report Type: 
  Country: None (occurrence: None)
  Receive Date: 20120814
  Receipt Date: 20120801
  Transmission Date: 20120928
  Serious: No
  Sender: FDA-Public Use
  Company Number: US-BAYER-2012-078669

PATIENT
  Age: 78 Year
  Sex: Female
  Weight: 79.365 kg

DRUGS (2)
  1. ALEVE (CAPLET) [Suspect]
     Indication: ARTHRITIS
     Dosage: 2 DF, QD
     Route: 048
     Dates: start: 20120101
  2. METFORMIN HCL [Concomitant]

REACTIONS (1)
  - RASH MACULAR [None]
